FAERS Safety Report 16951807 (Version 1)
Quarter: 2019Q4

REPORT INFORMATION
  Report Type: Spontaneous
  Country: US (occurrence: US)
  Receive Date: 20191023
  Receipt Date: 20191023
  Transmission Date: 20200122
  Serious: No
  Sender: FDA-Public Use
  Company Number: US-AMAG PHARMACEUTICALS, INC.-AMAG201905311

PATIENT
  Sex: Female

DRUGS (3)
  1. CIPRO [Concomitant]
     Active Substance: CIPROFLOXACIN HYDROCHLORIDE
  2. INTRAROSA [Suspect]
     Active Substance: PRASTERONE
     Indication: URINARY TRACT INFECTION
     Dosage: TAKEN TWICE DAILY (ONCE IN MORNING AND ONCE AT NIGHT).
     Route: 067
     Dates: start: 201910
  3. INTRAROSA [Suspect]
     Active Substance: PRASTERONE
     Indication: VULVOVAGINAL DRYNESS

REACTIONS (1)
  - Off label use [Unknown]

NARRATIVE: CASE EVENT DATE: 201910
